FAERS Safety Report 8062367-5 (Version None)
Quarter: 2012Q1

REPORT INFORMATION
  Report Type: 
  Country: None (occurrence: None)
  Receive Date: 20120123
  Receipt Date: 20120117
  Transmission Date: 20120608
  Serious: Yes (Hospitalization)
  Sender: FDA-Public Use
  Company Number: US-AMGEN-USASP2012003344

PATIENT
  Age: 64 Year
  Sex: Female

DRUGS (3)
  1. SYNTHROID [Concomitant]
     Dosage: UNK
  2. COLACE [Concomitant]
     Dosage: UNK
  3. ENBREL [Suspect]
     Indication: RHEUMATOID ARTHRITIS
     Dosage: 50 MG, QWK
     Dates: start: 20100126, end: 20120113

REACTIONS (6)
  - FEELING ABNORMAL [None]
  - MUSCLE SPASMS [None]
  - CONSTIPATION [None]
  - COLITIS ULCERATIVE [None]
  - RECTAL PROLAPSE [None]
  - DIARRHOEA [None]
